FAERS Safety Report 21810861 (Version 1)
Quarter: 2023Q1

REPORT INFORMATION
  Report Type: Other
  Country: None (occurrence: TN)
  Receive Date: 20230103
  Receipt Date: 20230103
  Transmission Date: 20230417
  Serious: Yes (Death, Hospitalization, Other)
  Sender: FDA-Public Use
  Company Number: TN-PAI Holdings, LLC dba Pharmaceutical Associates, Inc.-2136359

PATIENT
  Age: 27 Year

DRUGS (5)
  1. HALOPERIDOL [Suspect]
     Active Substance: HALOPERIDOL
     Indication: Schizophrenia
  2. DEVICE [Suspect]
     Active Substance: DEVICE
  3. DEVICE [Suspect]
     Active Substance: DEVICE
  4. CHLORPROMAZINE [Suspect]
     Active Substance: CHLORPROMAZINE
  5. BIPERIDEN [Concomitant]
     Active Substance: BIPERIDEN

REACTIONS (1)
  - Colitis ischaemic [Unknown]
